FAERS Safety Report 11768609 (Version 1)
Quarter: 2015Q4

REPORT INFORMATION
  Report Type: Report from Study
  Country: DE (occurrence: DE)
  Receive Date: 20151123
  Receipt Date: 20151123
  Transmission Date: 20160304
  Serious: Yes (Hospitalization)
  Sender: FDA-Public Use
  Company Number: DE-BIOGENIDEC-2015BI142752

PATIENT
  Age: 29 Year
  Sex: Female

DRUGS (5)
  1. TYSABRI [Suspect]
     Active Substance: NATALIZUMAB
     Indication: MULTIPLE SCLEROSIS
     Route: 042
     Dates: start: 20101021, end: 201205
  2. TAVOR [Concomitant]
     Active Substance: LORAZEPAM
  3. BIFITERAL [Concomitant]
     Active Substance: LACTULOSE
  4. CLEXANE [Concomitant]
     Active Substance: ENOXAPARIN SODIUM
  5. TYSABRI [Suspect]
     Active Substance: NATALIZUMAB
     Indication: MULTIPLE SCLEROSIS
     Route: 042
     Dates: start: 201206

REACTIONS (9)
  - Quadriparesis [Recovered/Resolved]
  - White blood cell count increased [Unknown]
  - Multiple sclerosis relapse [Recovered/Resolved with Sequelae]
  - Ataxia [Recovered/Resolved]
  - Fatigue [Unknown]
  - Depression [Recovered/Resolved with Sequelae]
  - Discomfort [Unknown]
  - Nausea [Unknown]
  - Multiple sclerosis [Unknown]

NARRATIVE: CASE EVENT DATE: 20120809
